FAERS Safety Report 11297602 (Version 1)
Quarter: 2015Q3

REPORT INFORMATION
  Report Type: Spontaneous
  Country: US (occurrence: US)
  Receive Date: 20150722
  Receipt Date: 20150722
  Transmission Date: 20151125
  Serious: No
  Sender: FDA-Public Use
  Company Number: US-ELI_LILLY_AND_COMPANY-US200808005686

PATIENT
  Sex: Female

DRUGS (11)
  1. ZOCOR [Concomitant]
     Active Substance: SIMVASTATIN
     Dosage: 40 MG, DAILY (1/D)
  2. ACIPHEX [Concomitant]
     Active Substance: RABEPRAZOLE SODIUM
     Dosage: 20 MG, DAILY (1/D)
  3. FISH OIL [Concomitant]
     Active Substance: FISH OIL
     Dosage: UNK, DAILY (1/D)
  4. GLUCOSAMINE [Concomitant]
     Active Substance: GLUCOSAMINE
     Dosage: UNK, 2/D
  5. CALCIUM [Concomitant]
     Active Substance: CALCIUM
     Dosage: UNK, 2/D
  6. HUMATROPE [Suspect]
     Active Substance: SOMATROPIN
     Indication: PITUITARY CYST
     Dosage: 0.3 MG, DAILY (1/D)
     Route: 058
     Dates: start: 2001
  7. FEMRING [Concomitant]
     Active Substance: ESTRADIOL ACETATE
  8. ASA [Concomitant]
     Active Substance: ASPIRIN
     Dosage: 81 MG, DAILY (1/D)
  9. GLUCOPHAGE [Concomitant]
     Active Substance: METFORMIN HYDROCHLORIDE
     Dosage: 500 MG, 2/D
  10. CHONDROITIN [Concomitant]
     Active Substance: CHONDROITIN
     Dosage: UNK, 2/D
  11. VITAMINS [Concomitant]
     Active Substance: VITAMINS
     Dosage: UNK, DAILY (1/D)

REACTIONS (12)
  - Eczema [Not Recovered/Not Resolved]
  - Polymyositis [Not Recovered/Not Resolved]
  - Autoimmune disorder [Not Recovered/Not Resolved]
  - Ligament rupture [Not Recovered/Not Resolved]
  - Arthralgia [Not Recovered/Not Resolved]
  - Glucose tolerance impaired [Not Recovered/Not Resolved]
  - Carpal tunnel syndrome [Not Recovered/Not Resolved]
  - Dermatomyositis [Not Recovered/Not Resolved]
  - Dyslipidaemia [Not Recovered/Not Resolved]
  - Sleep apnoea syndrome [Not Recovered/Not Resolved]
  - Cervical radiculopathy [Not Recovered/Not Resolved]
  - Dry skin [Not Recovered/Not Resolved]

NARRATIVE: CASE EVENT DATE: 2008
